FAERS Safety Report 5333412-2 (Version None)
Quarter: 2007Q2

REPORT INFORMATION
  Report Type: 
  Country: None (occurrence: None)
  Receive Date: 20070522
  Receipt Date: 20070522
  Transmission Date: 20071010
  Serious: No
  Sender: FDA-Public Use
  Company Number: None

PATIENT
  Age: 52 Year
  Sex: Male

DRUGS (1)
  1. TRAMADOL HCL [Suspect]
     Indication: PAIN
     Dosage: 100MG PRN PO
     Route: 048
     Dates: start: 20070103, end: 20070103

REACTIONS (6)
  - ERYTHEMA MULTIFORME [None]
  - NAUSEA [None]
  - PRURITUS [None]
  - RASH [None]
  - SWELLING FACE [None]
  - URTICARIA [None]
